FAERS Safety Report 17517693 (Version 1)
Quarter: 2020Q1

REPORT INFORMATION
  Report Type: Spontaneous
  Country: US (occurrence: US)
  Receive Date: 20200309
  Receipt Date: 20200309
  Transmission Date: 20200409
  Serious: Yes (Hospitalization)
  Sender: FDA-Public Use
  Company Number: None

PATIENT
  Age: 80 Year
  Sex: Male

DRUGS (1)
  1. WARFARIN [Suspect]
     Active Substance: WARFARIN
     Indication: ATRIAL FIBRILLATION

REACTIONS (5)
  - Gastrointestinal haemorrhage [None]
  - Haemoglobin decreased [None]
  - Haemodialysis [None]
  - International normalised ratio increased [None]
  - Packed red blood cell transfusion [None]

NARRATIVE: CASE EVENT DATE: 20190913
